FAERS Safety Report 9770247 (Version 2)
Quarter: 2014Q1

REPORT INFORMATION
  Report Type: Spontaneous
  Country: US (occurrence: US)
  Receive Date: 20131218
  Receipt Date: 20140204
  Transmission Date: 20141002
  Serious: Yes (Death, Hospitalization)
  Sender: FDA-Public Use
  Company Number: US-B.I. PHARMACEUTICALS,INC./RIDGEFIELD-2013-BI-42427BP

PATIENT
  Age: 76 Year
  Sex: Female
  Weight: 101.6 kg

DRUGS (10)
  1. PRADAXA [Suspect]
     Indication: ATRIAL FIBRILLATION
     Dosage: 300 MG
     Route: 048
     Dates: start: 20110324, end: 20120130
  2. PREMARIN [Concomitant]
     Dosage: 0.625 MG
     Route: 048
  3. PROTONIX [Concomitant]
     Dosage: 80 MG
     Route: 048
  4. NITROGLYCERIN [Concomitant]
     Route: 060
  5. ZOLOFT [Concomitant]
     Dosage: 50 MG
  6. LIPITOR [Concomitant]
  7. MECLIZINE [Concomitant]
     Dosage: 50 MG
  8. CARVEDILOL [Concomitant]
     Dosage: 25 MG
     Route: 048
  9. ATORVASTATIN [Concomitant]
     Dosage: 10 MG
     Route: 048
  10. LISINOPRIL [Concomitant]
     Dosage: 5 MG
     Route: 048

REACTIONS (1)
  - Haemorrhage intracranial [Fatal]
